FAERS Safety Report 13713794 (Version 1)
Quarter: 2017Q3

REPORT INFORMATION
  Report Type: Report from Study
  Country: US (occurrence: US)
  Receive Date: 20170704
  Receipt Date: 20170704
  Transmission Date: 20171127
  Serious: Yes (Other)
  Sender: FDA-Public Use
  Company Number: US-GILEAD-2017-0281220

PATIENT
  Age: 72 Year
  Sex: Female

DRUGS (2)
  1. AMBRISENTAN [Suspect]
     Active Substance: AMBRISENTAN
     Indication: PRODUCT USED FOR UNKNOWN INDICATION
     Dosage: 5 MG, QD
     Route: 065
  2. ADCIRCA [Concomitant]
     Active Substance: TADALAFIL

REACTIONS (8)
  - Peripheral swelling [Unknown]
  - Cataract [Unknown]
  - Blood potassium decreased [Unknown]
  - Visual impairment [Unknown]
  - Weight increased [Unknown]
  - Rash [Unknown]
  - Joint swelling [Unknown]
  - Fatigue [Unknown]

NARRATIVE: CASE EVENT DATE: 2012
